FAERS Safety Report 22219344 (Version 4)
Quarter: 2023Q2

REPORT INFORMATION
  Report Type: Report from Study
  Country: US (occurrence: US)
  Receive Date: 20230417
  Receipt Date: 20230519
  Transmission Date: 20230722
  Serious: Yes (Hospitalization, Other)
  Sender: FDA-Public Use
  Company Number: US-BRISTOL-MYERS SQUIBB COMPANY-2023-053509

PATIENT
  Age: 44 Year
  Sex: Male
  Weight: 91.8 kg

DRUGS (5)
  1. NIVOLUMAB [Suspect]
     Active Substance: NIVOLUMAB
     Indication: Small cell lung cancer
     Route: 042
     Dates: start: 20230215, end: 20230308
  2. IPILIMUMAB [Suspect]
     Active Substance: IPILIMUMAB
     Indication: Small cell lung cancer
     Route: 042
     Dates: start: 20230215, end: 20230308
  3. PLINABULIN [Suspect]
     Active Substance: PLINABULIN
     Indication: Small cell lung cancer
     Dosage: RP2D
     Route: 042
     Dates: start: 20230215, end: 20230308
  4. MAGNESIUM SULFATE [MAGNESIUM SULFATE HEPTAHYDRATE] [Concomitant]
     Indication: Hypomagnesaemia
     Route: 042
     Dates: start: 20230406, end: 20230406
  5. TOPOTECAN [Concomitant]
     Active Substance: TOPOTECAN HYDROCHLORIDE
     Indication: Prophylaxis
     Dosage: TOPOTECAN 5 MG PO ON DAYS 1-5 OF 21 DAY CYCLE
     Route: 048
     Dates: start: 20230330, end: 20230403

REACTIONS (2)
  - Supraventricular tachycardia [Recovered/Resolved]
  - Diverticulitis [Recovered/Resolved]

NARRATIVE: CASE EVENT DATE: 20230406
